FAERS Safety Report 13553392 (Version 1)
Quarter: 2017Q2

REPORT INFORMATION
  Report Type: Spontaneous
  Country: FR (occurrence: FR)
  Receive Date: 20170517
  Receipt Date: 20170517
  Transmission Date: 20170830
  Serious: Yes (Other)
  Sender: FDA-Public Use
  Company Number: FR-UCBSA-2017018367

PATIENT
  Age: 68 Year
  Sex: Female

DRUGS (1)
  1. KEPPRA [Suspect]
     Active Substance: LEVETIRACETAM
     Indication: PARTIAL SEIZURES
     Dosage: 125 MG, ONCE DAILY (QD)
     Route: 048
     Dates: start: 20170310, end: 20170322

REACTIONS (4)
  - Anxiety [Recovered/Resolved]
  - Withdrawal syndrome [Recovered/Resolved]
  - Off label use [Unknown]
  - Persistent depressive disorder [Recovered/Resolved]

NARRATIVE: CASE EVENT DATE: 20170310
